FAERS Safety Report 5847352-3 (Version None)
Quarter: 2008Q3

REPORT INFORMATION
  Report Type: 
  Country: None (occurrence: None)
  Receive Date: 20080813
  Receipt Date: 20080801
  Transmission Date: 20090109
  Serious: Yes (Hospitalization)
  Sender: FDA-Public Use
  Company Number: A-CH2008-21004

PATIENT
  Age: 73 Year
  Sex: Male

DRUGS (9)
  1. TRACLEER [Suspect]
     Indication: PULMONARY ARTERIAL HYPERTENSION
     Dosage: 62.5 MG, OD, ORAL
     Route: 048
     Dates: start: 20080520
  2. TEMERIT(NEBIVOLOL) [Suspect]
  3. AMLODIPINE BESYLATE [Suspect]
  4. SPIRIVA [Concomitant]
  5. SYMBICORT [Concomitant]
  6. KARDEGIC (ACETYLSALICYLATE LYSINE) [Concomitant]
  7. PREVISCAN (FLUINDIONE) [Concomitant]
  8. BACTRIM [Concomitant]
  9. ACETAMINOPHEN [Concomitant]

REACTIONS (6)
  - BURNING SENSATION [None]
  - CONDITION AGGRAVATED [None]
  - PHOTODERMATOSIS [None]
  - PRURITUS [None]
  - RASH [None]
  - RASH ERYTHEMATOUS [None]
